FAERS Safety Report 7430274-4 (Version None)
Quarter: 2011Q2

REPORT INFORMATION
  Report Type: 
  Country: None (occurrence: None)
  Receive Date: 20110421
  Receipt Date: 20110419
  Transmission Date: 20111010
  Serious: Yes (Hospitalization, Other)
  Sender: FDA-Public Use
  Company Number: US-B.I. PHARMACEUTICALS,INC./RIDGEFIELD-2011-BP-08226BP

PATIENT
  Age: 86 Year
  Sex: Male
  Weight: 99.34 kg

DRUGS (6)
  1. ASPIRIN [Concomitant]
     Dosage: 81 MG
  2. PRADAXA [Suspect]
     Indication: ATRIAL FIBRILLATION
     Dosage: 300 MG
     Dates: start: 20101207, end: 20110220
  3. ACIPHEX [Concomitant]
     Dosage: 20 MG
  4. MULTAQ [Concomitant]
     Dates: start: 20091216, end: 20110220
  5. METOPROLOL TARTRATE [Concomitant]
     Dosage: 50 MG
  6. MULTAQ [Concomitant]
     Dates: start: 20101207, end: 20110220

REACTIONS (1)
  - DEEP VEIN THROMBOSIS [None]
